FAERS Safety Report 4755004-6 (Version None)
Quarter: 2005Q3

REPORT INFORMATION
  Report Type: 
  Country: None (occurrence: None)
  Receive Date: 20050825
  Receipt Date: 20050815
  Transmission Date: 20060218
  Serious: Yes (Hospitalization)
  Sender: FDA-Public Use
  Company Number: 2005116431

PATIENT
  Age: 56 Year
  Sex: Female

DRUGS (3)
  1. ZOLOFT [Suspect]
     Indication: ILL-DEFINED DISORDER
     Dosage: 50 MG (1 D), ORAL
     Route: 048
     Dates: start: 20000101
  2. CLOZAPINE [Suspect]
     Indication: ILL-DEFINED DISORDER
     Dosage: 125 MG (1 D), ORAL
     Route: 048
     Dates: start: 20000101, end: 20010111
  3. LORAZEPAM [Concomitant]

REACTIONS (5)
  - DELIRIUM [None]
  - DEPRESSION [None]
  - DEPRESSIVE DELUSION [None]
  - DISORIENTATION [None]
  - DRUG INTERACTION [None]
